FAERS Safety Report 14779894 (Version 1)
Quarter: 2018Q2

REPORT INFORMATION
  Report Type: Spontaneous
  Country: NL (occurrence: NL)
  Receive Date: 20180419
  Receipt Date: 20180419
  Transmission Date: 20180711
  Serious: Yes (Hospitalization, Other)
  Sender: FDA-Public Use
  Company Number: NL-MYLANLABS-2018M1024397

PATIENT
  Age: 70 Year
  Sex: Male

DRUGS (2)
  1. CHLORHEXIDINE [Concomitant]
     Active Substance: CHLORHEXIDINE
     Indication: INFECTION PROPHYLAXIS
     Route: 065
  2. BUPIVACAINE. [Suspect]
     Active Substance: BUPIVACAINE
     Indication: ANAESTHESIA
     Dosage: CONTINUOUS DOSE SPINAL ANAESTHESIA
     Route: 050

REACTIONS (3)
  - Extradural abscess [Recovered/Resolved]
  - Staphylococcal abscess [Recovered/Resolved]
  - Injection site abscess [Recovered/Resolved]
